FAERS Safety Report 23476807 (Version 1)
Quarter: 2024Q1

REPORT INFORMATION
  Report Type: Report from Study
  Country: US (occurrence: US)
  Receive Date: 20240204
  Receipt Date: 20240204
  Transmission Date: 20240409
  Serious: No
  Sender: FDA-Public Use
  Company Number: US-EXELIXIS-CABO-23064027

PATIENT
  Sex: Male

DRUGS (7)
  1. CABOMETYX [Suspect]
     Active Substance: CABOZANTINIB S-MALATE
     Indication: Renal cell carcinoma
     Dosage: 60 MG, QD
     Dates: start: 202304
  2. CABOMETYX [Suspect]
     Active Substance: CABOZANTINIB S-MALATE
     Dosage: 60 MG, QD
  3. LEVOTHYROXINE [Concomitant]
     Active Substance: LEVOTHYROXINE\LEVOTHYROXINE SODIUM
     Dosage: UNK
  4. ALLOPURINOL [Concomitant]
     Active Substance: ALLOPURINOL
     Dosage: UNK
  5. IRBESARTAN [Concomitant]
     Active Substance: IRBESARTAN
     Dosage: UNK
  6. VITAMINS [Concomitant]
     Active Substance: VITAMINS
  7. VITAMIN D [Concomitant]
     Active Substance: VITAMIN D NOS

REACTIONS (19)
  - Contusion [Not Recovered/Not Resolved]
  - Hyperkeratosis [Unknown]
  - Visual impairment [Unknown]
  - Eye pain [Unknown]
  - Facial pain [Unknown]
  - Paraesthesia [Unknown]
  - Glossodynia [Not Recovered/Not Resolved]
  - Oral pain [Unknown]
  - Alopecia [Unknown]
  - Hair colour changes [Unknown]
  - Erythema [Not Recovered/Not Resolved]
  - Impaired healing [Not Recovered/Not Resolved]
  - Taste disorder [Not Recovered/Not Resolved]
  - Gastrointestinal motility disorder [Unknown]
  - Nausea [Recovered/Resolved]
  - Asthenia [Not Recovered/Not Resolved]
  - Decreased appetite [Recovering/Resolving]
  - Pain in extremity [Not Recovered/Not Resolved]
  - Weight decreased [Not Recovered/Not Resolved]
